FAERS Safety Report 5534129-1 (Version None)
Quarter: 2007Q4

REPORT INFORMATION
  Report Type: 
  Country: None (occurrence: None)
  Receive Date: 20071129
  Receipt Date: 20071129
  Transmission Date: 20080405
  Serious: Yes (Hospitalization)
  Sender: FDA-Public Use
  Company Number: None

PATIENT
  Sex: Male
  Weight: 75.2971 kg

DRUGS (2)
  1. KENALOG-40 [Suspect]
     Indication: ARTHRALGIA
     Dosage: STANDARD FOR KNEE 1 PER YEAR KNEE
     Dates: start: 20071109
  2. KENALOG-40 [Suspect]
     Indication: MUSCULOSKELETAL PAIN
     Dosage: STANDARD--SHOULDER 1 TIME SHOULDER
     Dates: start: 20031026

REACTIONS (5)
  - BURNING SENSATION [None]
  - PRURITUS [None]
  - RASH [None]
  - REACTION TO DRUG EXCIPIENTS [None]
  - URTICARIA [None]
